FAERS Safety Report 5061848-6 (Version None)
Quarter: 2006Q3

REPORT INFORMATION
  Report Type: 
  Country: None (occurrence: None)
  Receive Date: 20060726
  Receipt Date: 20060507
  Transmission Date: 20061208
  Serious: Yes (Other)
  Sender: FDA-Public Use
  Company Number: IL-JNJFOC-20060502045

PATIENT
  Age: 27 Year
  Sex: Female

DRUGS (3)
  1. TOPAMAX [Suspect]
     Indication: MYOCLONIC EPILEPSY
     Route: 065
  2. TEGRETOL [Suspect]
     Indication: MYOCLONIC EPILEPSY
     Route: 048
  3. CLONEX [Suspect]
     Indication: DRUG USE FOR UNKNOWN INDICATION
     Route: 048

REACTIONS (2)
  - DRUG EXPOSURE DURING PREGNANCY [None]
  - PRE-ECLAMPSIA [None]
